FAERS Safety Report 9816927 (Version 1)
Quarter: 2014Q1

REPORT INFORMATION
  Report Type: Report from Study
  Country: BR (occurrence: BR)
  Receive Date: 20140114
  Receipt Date: 20140114
  Transmission Date: 20141002
  Serious: Yes (Hospitalization)
  Sender: FDA-Public Use
  Company Number: PHHY2014BR002924

PATIENT
  Sex: Female
  Weight: 68 kg

DRUGS (8)
  1. DIOVAN AMLO FIX [Suspect]
     Indication: BLOOD PRESSURE ABNORMAL
     Dosage: 1 DF, QD, (VALS 320 MG, AMLO 10 MG) IN THE MORNING
     Route: 048
  2. ATENOLOL [Suspect]
     Indication: BLOOD PRESSURE
     Dosage: 1 DF, IN THE MORNING(25 MG)
     Route: 048
  3. CAPTOPRIL [Suspect]
     Dosage: 5 DF, UNK(2TIMES IN MORNING, ONE AFTER LUNCH AND 2 AT NIGHT)
  4. SIMVASTATIN [Suspect]
  5. FLUOXETINE [Suspect]
     Indication: ANTIDEPRESSANT THERAPY
  6. METHYLDOPA [Suspect]
     Dosage: UNK, (TWO TIMES IN THE MORNING)
  7. PROPRANOLOL [Suspect]
     Dosage: 2 TIMES A DAY
  8. INSULIN [Suspect]
     Dosage: UNK, (20 IN THE MORNING, 5 AFTER LUNCH, 15 AT BEDTIME AND 5 AFTER DINNER)

REACTIONS (14)
  - Tongue dry [Not Recovered/Not Resolved]
  - Vein disorder [Not Recovered/Not Resolved]
  - Feeling abnormal [Not Recovered/Not Resolved]
  - Visual impairment [Not Recovered/Not Resolved]
  - Neck pain [Not Recovered/Not Resolved]
  - Sputum abnormal [Not Recovered/Not Resolved]
  - Paraesthesia [Not Recovered/Not Resolved]
  - Hypoaesthesia oral [Not Recovered/Not Resolved]
  - Dysgraphia [Not Recovered/Not Resolved]
  - Dysgeusia [Not Recovered/Not Resolved]
  - Somnolence [Not Recovered/Not Resolved]
  - Dry mouth [Not Recovered/Not Resolved]
  - Chest pain [Not Recovered/Not Resolved]
  - Blood pressure increased [Not Recovered/Not Resolved]
